FAERS Safety Report 15897562 (Version 1)
Quarter: 2019Q1

REPORT INFORMATION
  Report Type: Spontaneous
  Country: FR (occurrence: FR)
  Receive Date: 20190131
  Receipt Date: 20190131
  Transmission Date: 20190417
  Serious: Yes (Hospitalization, Other)
  Sender: FDA-Public Use
  Company Number: FR-ABBVIE-18K-056-2555952-00

PATIENT
  Age: 33 Year
  Sex: Male
  Weight: 72 kg

DRUGS (1)
  1. HUMIRA [Suspect]
     Active Substance: ADALIMUMAB
     Indication: CROHN^S DISEASE
     Route: 058
     Dates: start: 201504

REACTIONS (5)
  - Lymphadenopathy [Unknown]
  - Pyrexia [Unknown]
  - Angioimmunoblastic T-cell lymphoma refractory [Not Recovered/Not Resolved]
  - Hepatosplenomegaly [Unknown]
  - Renal failure [Unknown]

NARRATIVE: CASE EVENT DATE: 201806
